FAERS Safety Report 15434293 (Version 1)
Quarter: 2018Q3

REPORT INFORMATION
  Report Type: Spontaneous
  Country: US (occurrence: US)
  Receive Date: 20180920
  Receipt Date: 20180920
  Transmission Date: 20181010
  Serious: Yes (Hospitalization)
  Sender: FDA-Public Use
  Company Number: None

PATIENT
  Age: 22 Year
  Sex: Female
  Weight: 113.4 kg

DRUGS (3)
  1. IBUPROFEN. [Concomitant]
     Active Substance: IBUPROFEN
  2. MIRENA [Suspect]
     Active Substance: LEVONORGESTREL
     Dates: start: 20180201
  3. NAUSEA MEDS [Concomitant]

REACTIONS (3)
  - Complication associated with device [None]
  - Cholelithiasis [None]
  - Surgery [None]

NARRATIVE: CASE EVENT DATE: 20180810
